FAERS Safety Report 13965594 (Version 1)
Quarter: 2017Q3

REPORT INFORMATION
  Report Type: Spontaneous
  Country: US (occurrence: US)
  Receive Date: 20170913
  Receipt Date: 20170913
  Transmission Date: 20171128
  Serious: Yes (Other)
  Sender: FDA-Public Use
  Company Number: US-ASTELLAS-2017US035957

PATIENT
  Sex: Female

DRUGS (1)
  1. MYRBETRIQ [Suspect]
     Active Substance: MIRABEGRON
     Indication: PRODUCT USED FOR UNKNOWN INDICATION
     Route: 065
     Dates: start: 201708

REACTIONS (6)
  - Ear operation [Unknown]
  - Pain in extremity [Unknown]
  - Immune system disorder [Unknown]
  - Hiatus hernia [Unknown]
  - Gastroenteritis bacterial [Unknown]
  - Drug ineffective [Unknown]
